FAERS Safety Report 5661739-3 (Version None)
Quarter: 2008Q1

REPORT INFORMATION
  Report Type: 
  Country: None (occurrence: None)
  Receive Date: 20080312
  Receipt Date: 20080304
  Transmission Date: 20080703
  Serious: Yes (Other)
  Sender: FDA-Public Use
  Company Number: B0511929A

PATIENT
  Age: 16 Year
  Sex: Male

DRUGS (1)
  1. SERETIDE [Suspect]
     Dates: start: 20050101, end: 20080225

REACTIONS (3)
  - APHTHOUS STOMATITIS [None]
  - CHEILITIS [None]
  - PYREXIA [None]
